FAERS Safety Report 7427628-9 (Version None)
Quarter: 2011Q2

REPORT INFORMATION
  Report Type: 
  Country: None (occurrence: None)
  Receive Date: 20110421
  Receipt Date: 20110413
  Transmission Date: 20111010
  Serious: Yes (Other)
  Sender: FDA-Public Use
  Company Number: US-ASTRAZENECA-2009UW11861

PATIENT
  Age: 463 Month
  Sex: Female

DRUGS (7)
  1. PAMELOR [Concomitant]
     Dates: start: 20100519
  2. SEROQUEL [Suspect]
     Dosage: 100 MG, 1 AND 1/2 TABLET PO DAILY
     Route: 048
     Dates: start: 20070522
  3. ALTACE [Concomitant]
     Route: 048
     Dates: start: 20070629
  4. DIETHYLPROPION [Concomitant]
     Route: 048
     Dates: start: 20070709
  5. FLUOXETINE [Concomitant]
     Route: 048
     Dates: start: 20070719
  6. SEROQUEL [Suspect]
     Indication: BIPOLAR DISORDER
     Route: 048
     Dates: start: 20070101
  7. ZYRTEC [Concomitant]
     Route: 048
     Dates: start: 20070416

REACTIONS (5)
  - NEUROPATHY PERIPHERAL [None]
  - CARPAL TUNNEL SYNDROME [None]
  - DIABETES MELLITUS [None]
  - DIABETIC NEUROPATHY [None]
  - NERVE COMPRESSION [None]
